FAERS Safety Report 7611818-6 (Version None)
Quarter: 2011Q3

REPORT INFORMATION
  Report Type: 
  Country: None (occurrence: None)
  Receive Date: 20110715
  Receipt Date: 20110708
  Transmission Date: 20111222
  Serious: Yes (Death)
  Sender: FDA-Public Use
  Company Number: JP-SANOFI-AVENTIS-2011SA042845

PATIENT
  Age: 78 Year

DRUGS (1)
  1. RASURITEK INTRAVENOUS [Suspect]
     Route: 041
     Dates: start: 20110604, end: 20110604

REACTIONS (1)
  - DISEASE PROGRESSION [None]
